FAERS Safety Report 8778939 (Version 3)
Quarter: 2012Q4

REPORT INFORMATION
  Report Type: 
  Country: JP (occurrence: JP)
  Receive Date: 20120912
  Receipt Date: 20120925
  Transmission Date: 20130627
  Serious: Yes (Hospitalization, Other)
  Sender: FDA-Public Use
  Company Number: PHHY2012JP072692

PATIENT
  Age: 43 Year
  Sex: Female

DRUGS (2)
  1. TEGRETOL [Suspect]
     Indication: DELUSIONAL PERCEPTION
     Route: 048
     Dates: start: 2007, end: 20120810
  2. LASIX [Concomitant]
     Indication: OEDEMA
     Route: 048

REACTIONS (8)
  - Pleural effusion [Recovering/Resolving]
  - Blood potassium decreased [Unknown]
  - Muscular weakness [Not Recovered/Not Resolved]
  - Asthenia [Unknown]
  - Aggression [Not Recovered/Not Resolved]
  - Agitation [Not Recovered/Not Resolved]
  - Alopecia [Not Recovered/Not Resolved]
  - Complex regional pain syndrome [Not Recovered/Not Resolved]
